FAERS Safety Report 8604223-7 (Version None)
Quarter: 2012Q3

REPORT INFORMATION
  Report Type: 
  Country: None (occurrence: None)
  Receive Date: 20120820
  Receipt Date: 20120815
  Transmission Date: 20120928
  Serious: No
  Sender: FDA-Public Use
  Company Number: US-PFIZER INC-2012200343

PATIENT
  Age: 83 Year
  Sex: Female
  Weight: 54.422 kg

DRUGS (1)
  1. NITROSTAT [Suspect]
     Indication: CARDIAC DISORDER
     Dosage: 0.4 MG, AS NEEDED
     Route: 060
     Dates: end: 20120801

REACTIONS (1)
  - DRUG INEFFECTIVE [None]
